FAERS Safety Report 9109252 (Version 2)
Quarter: 2013Q2

REPORT INFORMATION
  Report Type: Spontaneous
  Country: CA (occurrence: CA)
  Receive Date: 20130222
  Receipt Date: 20130403
  Transmission Date: 20140414
  Serious: Yes (Hospitalization)
  Sender: FDA-Public Use
  Company Number: CA-AMGEN-CANSP2013010985

PATIENT
  Age: 75 Year
  Sex: Female
  Weight: 54.55 kg

DRUGS (4)
  1. PROLIA [Suspect]
     Indication: OSTEOPOROSIS POSTMENOPAUSAL
     Dosage: 60 MG, UNK
     Dates: start: 20121018
  2. MORPHINE [Concomitant]
  3. TYLENOL /00020001/ [Concomitant]
  4. CELEBREX [Concomitant]

REACTIONS (6)
  - Intervertebral disc protrusion [Unknown]
  - Hernia [Unknown]
  - Abdominal discomfort [Unknown]
  - Pain [Unknown]
  - Lung infection [Unknown]
  - Constipation [Unknown]
